FAERS Safety Report 8765439 (Version 2)
Quarter: 2012Q4

REPORT INFORMATION
  Report Type: 
  Country: JP (occurrence: JP)
  Receive Date: 20120902
  Receipt Date: 20120911
  Transmission Date: 20130627
  Serious: Yes (Hospitalization)
  Sender: FDA-Public Use
  Company Number: JP-PFIZER INC-2012213505

PATIENT
  Sex: Male

DRUGS (1)
  1. CHAMPIX [Suspect]
     Dosage: UNK

REACTIONS (2)
  - Diverticulitis [Unknown]
  - Peritonitis [Unknown]
